FAERS Safety Report 10420062 (Version 1)
Quarter: 2014Q3

REPORT INFORMATION
  Report Type: Spontaneous
  Country: GB (occurrence: None)
  Receive Date: 20140828
  Receipt Date: 20140828
  Transmission Date: 20150326
  Serious: Yes (Other)
  Sender: FDA-Public Use
  Company Number: AUR-APL-2014-09004

PATIENT
  Age: 35 Year
  Sex: Female
  Weight: 76.7 kg

DRUGS (5)
  1. CO-CODAMOL (CODEINE PHOSPHATE, PARACETAMOL) [Concomitant]
  2. PARACETAMOL [Concomitant]
     Active Substance: ACETAMINOPHEN
  3. LEVOTHYROXINE [Concomitant]
     Active Substance: LEVOTHYROXINE
  4. NAPROXEN 500MG (NAPROXEN) UNKNOWN, 500MG [Suspect]
     Active Substance: NAPROXEN
     Indication: JOINT INJURY
     Route: 048
     Dates: start: 20140609, end: 20140801
  5. IBUPROFEN (IBUPROFEN) [Concomitant]
     Active Substance: IBUPROFEN

REACTIONS (14)
  - Hemiparesis [None]
  - Anxiety [None]
  - Musculoskeletal stiffness [None]
  - Disturbance in attention [None]
  - Coordination abnormal [None]
  - Diarrhoea [None]
  - Lethargy [None]
  - Gastrooesophageal reflux disease [None]
  - Gastritis [None]
  - Chest discomfort [None]
  - Fatigue [None]
  - Heart rate increased [None]
  - Pain [None]
  - Tearfulness [None]

NARRATIVE: CASE EVENT DATE: 20140720
